FAERS Safety Report 9417500 (Version 1)
Quarter: 2013Q3

REPORT INFORMATION
  Report Type: Spontaneous
  Country: US (occurrence: US)
  Receive Date: 20130724
  Receipt Date: 20130724
  Transmission Date: 20140515
  Serious: No
  Sender: FDA-Public Use
  Company Number: US-BRISTOL-MYERS SQUIBB COMPANY-17469883

PATIENT
  Age: 84 Year
  Sex: Male

DRUGS (2)
  1. ELIQUIS [Suspect]
     Indication: ATRIAL FIBRILLATION
     Dosage: SPLITTING THEM IN HALF: 2.5 MG?TABS
     Route: 048
     Dates: start: 20130308, end: 20130325
  2. COUMADIN [Suspect]

REACTIONS (2)
  - Feeling cold [Unknown]
  - Wrong technique in drug usage process [Unknown]
